FAERS Safety Report 6160363-6 (Version None)
Quarter: 2009Q2

REPORT INFORMATION
  Report Type: 
  Country: None (occurrence: None)
  Receive Date: 20090420
  Receipt Date: 20090414
  Transmission Date: 20091009
  Serious: Yes (Hospitalization)
  Sender: FDA-Public Use
  Company Number: FR-JNJFOC-20090403505

PATIENT
  Sex: Female

DRUGS (3)
  1. HALDOL [Suspect]
     Route: 048
  2. HALDOL [Suspect]
     Indication: SCHIZOPHRENIA
     Route: 048
  3. LEPONEX [Suspect]
     Indication: SCHIZOPHRENIA
     Route: 048

REACTIONS (3)
  - CHOLESTASIS [None]
  - HYPERTHERMIA [None]
  - NEUTROPENIA [None]
